FAERS Safety Report 17017098 (Version 1)
Quarter: 2019Q4

REPORT INFORMATION
  Report Type: Spontaneous
  Country: US (occurrence: US)
  Receive Date: 20191111
  Receipt Date: 20191111
  Transmission Date: 20200122
  Serious: Yes (Death, Hospitalization, Other)
  Sender: FDA-Public Use
  Company Number: US-EX USA HOLDINGS-EXHL20192426

PATIENT
  Age: 27 Year
  Sex: Female

DRUGS (1)
  1. ISIBLOOM [Suspect]
     Active Substance: DESOGESTREL\ETHINYL ESTRADIOL
     Indication: POLYCYSTIC OVARIES
     Dosage: 1 PILL
     Route: 048
     Dates: start: 201908, end: 20190910

REACTIONS (6)
  - Peripheral swelling [Fatal]
  - Cyanosis [Fatal]
  - Intentional product use issue [None]
  - Pulmonary embolism [Fatal]
  - Dyspnoea [Fatal]
  - Brain oedema [Fatal]

NARRATIVE: CASE EVENT DATE: 201909
